FAERS Safety Report 5934062-7 (Version None)
Quarter: 2008Q4

REPORT INFORMATION
  Report Type: 
  Country: None (occurrence: None)
  Receive Date: 20081029
  Receipt Date: 20081023
  Transmission Date: 20090506
  Serious: Yes (Hospitalization, Other)
  Sender: FDA-Public Use
  Company Number: JP-BRISTOL-MYERS SQUIBB COMPANY-14230668

PATIENT
  Age: 78 Year
  Sex: Male

DRUGS (7)
  1. GATIFLOXACIN [Suspect]
     Indication: URINARY TRACT INFECTION
     Route: 048
     Dates: start: 20080607, end: 20080607
  2. GATIFLOXACIN [Suspect]
     Indication: URETHRITIS
     Route: 048
     Dates: start: 20080607, end: 20080607
  3. GATIFLOXACIN [Suspect]
     Indication: BENIGN PROSTATIC HYPERPLASIA
     Route: 048
     Dates: start: 20080607, end: 20080607
  4. CERNILTON [Concomitant]
     Indication: URETHRITIS
     Route: 048
     Dates: start: 20080607, end: 20080607
  5. CERNILTON [Concomitant]
     Indication: BENIGN PROSTATIC HYPERPLASIA
     Route: 048
     Dates: start: 20080607, end: 20080607
  6. FLIVAS [Concomitant]
     Indication: URETHRITIS
     Dosage: 2 DOSAGE FORM = 2 TABS.
     Route: 048
     Dates: start: 20080607, end: 20080607
  7. FLIVAS [Concomitant]
     Indication: BENIGN PROSTATIC HYPERPLASIA
     Dosage: 2 DOSAGE FORM = 2 TABS.
     Route: 048
     Dates: start: 20080607, end: 20080607

REACTIONS (4)
  - ANAPHYLACTIC SHOCK [None]
  - BLOOD CREATINE PHOSPHOKINASE INCREASED [None]
  - C-REACTIVE PROTEIN INCREASED [None]
  - WHITE BLOOD CELL COUNT INCREASED [None]
